FAERS Safety Report 7206390-9 (Version None)
Quarter: 2011Q1

REPORT INFORMATION
  Report Type: 
  Country: None (occurrence: None)
  Receive Date: 20110103
  Receipt Date: 20110103
  Transmission Date: 20110831
  Serious: Yes (Hospitalization)
  Sender: FDA-Public Use
  Company Number: PHHO2008US06237

PATIENT
  Sex: Female
  Weight: 70.6 kg

DRUGS (3)
  1. AFINITOR [Suspect]
     Indication: CARCINOID TUMOUR
     Dosage: 10 MG, QD
     Route: 048
     Dates: start: 20080408, end: 20081015
  2. SANDOSTATIN LAR [Suspect]
     Indication: CARCINOID TUMOUR
     Dosage: DOUBLE BLIND
     Dates: start: 20070212
  3. AMLODIPINE [Concomitant]
     Indication: HYPERTENSION

REACTIONS (3)
  - ABDOMINAL PAIN [None]
  - DEHYDRATION [None]
  - DIARRHOEA [None]
